FAERS Safety Report 13505622 (Version 1)
Quarter: 2017Q2

REPORT INFORMATION
  Report Type: Spontaneous
  Country: US (occurrence: US)
  Receive Date: 20170502
  Receipt Date: 20170502
  Transmission Date: 20170830
  Serious: Yes (Hospitalization, Other)
  Sender: FDA-Public Use
  Company Number: US-JAZZ-2014-US-015639

PATIENT
  Sex: Female

DRUGS (6)
  1. MACROBID [Suspect]
     Active Substance: NITROFURANTOIN\NITROFURANTOIN MONOHYDRATE
     Indication: STAPHYLOCOCCAL INFECTION
     Dosage: UNK
     Dates: start: 2014
  2. XYREM [Suspect]
     Active Substance: SODIUM OXYBATE
     Dosage: 4.5 G, FIRST NIGHTLY DOSE
     Route: 048
  3. XYREM [Suspect]
     Active Substance: SODIUM OXYBATE
     Indication: NARCOLEPSY
     Dosage: 2.25 G, BID
     Route: 048
     Dates: start: 200307
  4. XYREM [Suspect]
     Active Substance: SODIUM OXYBATE
     Indication: CATAPLEXY
     Dosage: DOSAGE ADJUSTMENTS
     Route: 048
  5. XYREM [Suspect]
     Active Substance: SODIUM OXYBATE
     Dosage: 3.75 G, SECOND NIGHTLY DOSE
     Route: 048
  6. GLEEVEC [Concomitant]
     Active Substance: IMATINIB MESYLATE
     Indication: MAST CELL ACTIVATION SYNDROME
     Dosage: 300 MG, QD
     Route: 048

REACTIONS (9)
  - Mast cell activation syndrome [Unknown]
  - Urine odour abnormal [Unknown]
  - Staphylococcal infection [Unknown]
  - Sinusitis [Unknown]
  - Kidney infection [Unknown]
  - Abdominal discomfort [Unknown]
  - Muscle spasms [Not Recovered/Not Resolved]
  - Blood potassium decreased [Not Recovered/Not Resolved]
  - Diarrhoea [Unknown]

NARRATIVE: CASE EVENT DATE: 2014
